FAERS Safety Report 8221858-4 (Version None)
Quarter: 2012Q1

REPORT INFORMATION
  Report Type: 
  Country: None (occurrence: None)
  Receive Date: 20120307
  Receipt Date: 20110622
  Transmission Date: 20120608
  Serious: Yes (Hospitalization)
  Sender: FDA-Public Use
  Company Number: PHHY2011US06948

PATIENT
  Age: 16 Year
  Sex: Female
  Weight: 61 kg

DRUGS (7)
  1. VITAMIN D [Concomitant]
  2. ACETAMINOPHEN [Concomitant]
  3. AFINITOR [Suspect]
     Dosage: 7.5 MG, QD, ORAL
     Route: 048
     Dates: start: 20111220
  4. PLAQUENIL [Concomitant]
  5. PREDNISONE TAB [Concomitant]
  6. AFINITOR [Suspect]
     Indication: ASTROCYTOMA
     Dosage: 5 MG DAILY, ORAL
     Route: 048
     Dates: start: 20101221
  7. HYDROXYCHLOROQUINE SULFATE [Concomitant]

REACTIONS (8)
  - SCREAMING [None]
  - BLOOD TRIGLYCERIDES INCREASED [None]
  - DIZZINESS [None]
  - HEADACHE [None]
  - NAUSEA [None]
  - BLOOD CHOLESTEROL INCREASED [None]
  - DEHYDRATION [None]
  - NON-HIGH-DENSITY LIPOPROTEIN CHOLESTEROL INCREASED [None]
